FAERS Safety Report 12269688 (Version 3)
Quarter: 2016Q3

REPORT INFORMATION
  Report Type: Spontaneous
  Country: US (occurrence: US)
  Receive Date: 20160414
  Receipt Date: 20160705
  Transmission Date: 20161109
  Serious: Yes (Life-Threatening, Hospitalization)
  Sender: FDA-Public Use
  Company Number: US-ALLERGAN-1653515US

PATIENT
  Age: 67 Year
  Sex: Female
  Weight: 109.3 kg

DRUGS (16)
  1. PENTOPRIL [Concomitant]
  2. BOTOX [Suspect]
     Active Substance: ONABOTULINUMTOXINA
     Dosage: 100 UNITS, SINGLE
     Dates: start: 20141121, end: 20141121
  3. SYMBICORT [Concomitant]
     Active Substance: BUDESONIDE\FORMOTEROL FUMARATE DIHYDRATE
  4. METFORMIN [Concomitant]
     Active Substance: METFORMIN HYDROCHLORIDE
  5. ALBUTEROL. [Concomitant]
     Active Substance: ALBUTEROL
  6. LEVOTHYROXINE. [Concomitant]
     Active Substance: LEVOTHYROXINE
  7. CITALOPRAM [Concomitant]
     Active Substance: CITALOPRAM HYDROBROMIDE
  8. LIDOCAINE. [Concomitant]
     Active Substance: LIDOCAINE
  9. RISPERIDONE. [Concomitant]
     Active Substance: RISPERIDONE
  10. VERAPAMIL [Concomitant]
     Active Substance: VERAPAMIL HYDROCHLORIDE
  11. LASIX [Concomitant]
     Active Substance: FUROSEMIDE
  12. MYRBETRIQ [Concomitant]
     Active Substance: MIRABEGRON
  13. GLIPIZIDE. [Concomitant]
     Active Substance: GLIPIZIDE
  14. DOXEPIN [Concomitant]
     Active Substance: DOXEPIN
  15. PROPOFOL. [Concomitant]
     Active Substance: PROPOFOL
  16. BOTOX [Suspect]
     Active Substance: ONABOTULINUMTOXINA
     Indication: HYPERTONIC BLADDER
     Dosage: 100 UNITS, SINGLE
     Route: 043
     Dates: start: 20160408, end: 20160408

REACTIONS (3)
  - Respiratory depression [Recovered/Resolved]
  - Delayed recovery from anaesthesia [Recovered/Resolved]
  - Loss of consciousness [Recovered/Resolved]

NARRATIVE: CASE EVENT DATE: 20160408
